FAERS Safety Report 19258368 (Version 1)
Quarter: 2021Q2

REPORT INFORMATION
  Report Type: Spontaneous
  Country: US (occurrence: US)
  Receive Date: 20210514
  Receipt Date: 20210514
  Transmission Date: 20210717
  Serious: Yes (Hospitalization, Other)
  Sender: FDA-Public Use
  Company Number: US-GLAXOSMITHKLINE-US2021GSK101891

PATIENT
  Sex: Female

DRUGS (1)
  1. VALACYCLOVIR [Suspect]
     Active Substance: VALACYCLOVIR HYDROCHLORIDE
     Indication: GENITAL HERPES
     Dosage: UNK
     Route: 064

REACTIONS (16)
  - Hypokinesia [Recovered/Resolved]
  - Radial pulse decreased [Recovered/Resolved]
  - Brachial plexus injury [Recovered/Resolved]
  - Pain in extremity [Recovered/Resolved]
  - Skin plaque [Recovered/Resolved]
  - Foetal distress syndrome [Unknown]
  - Skin lesion [Recovered/Resolved]
  - Skin oedema [Recovered/Resolved]
  - Fat necrosis [Recovered/Resolved]
  - Haematoma [Recovered/Resolved]
  - Skin discharge [Recovered/Resolved]
  - Foetal exposure during pregnancy [Unknown]
  - Erythema [Recovered/Resolved]
  - Motor dysfunction [Recovered/Resolved]
  - Skin ulcer [Recovered/Resolved]
  - Lipoatrophy [Recovered/Resolved]
